FAERS Safety Report 25047162 (Version 4)
Quarter: 2025Q1

REPORT INFORMATION
  Report Type: Spontaneous
  Country: US (occurrence: US)
  Receive Date: 20250306
  Receipt Date: 20250327
  Transmission Date: 20250409
  Serious: No
  Sender: PFIZER
  Company Number: US-PFIZER INC-202500048145

PATIENT
  Age: 2 Year
  Sex: Male

DRUGS (1)
  1. GENOTROPIN [Suspect]
     Active Substance: SOMATROPIN
     Indication: Growth hormone deficiency
     Dosage: 0.3 MG, DAILY
     Dates: start: 202502

REACTIONS (4)
  - Drug dose omission by device [Unknown]
  - Device mechanical issue [Unknown]
  - Device leakage [Unknown]
  - Device physical property issue [Unknown]

NARRATIVE: CASE EVENT DATE: 20250301
